FAERS Safety Report 11909412 (Version 2)
Quarter: 2016Q2

REPORT INFORMATION
  Report Type: Spontaneous
  Country: US (occurrence: US)
  Receive Date: 20160112
  Receipt Date: 20160415
  Transmission Date: 20160815
  Serious: No
  Sender: FDA-Public Use
  Company Number: US-TEVA-622648USA

PATIENT
  Age: 40 Year
  Sex: Female

DRUGS (1)
  1. ZECUITY [Suspect]
     Active Substance: SUMATRIPTAN SUCCINATE
     Route: 062
     Dates: start: 20151208, end: 20151208

REACTIONS (6)
  - Application site pain [Recovering/Resolving]
  - Skin reaction [Recovered/Resolved]
  - Application site erythema [Unknown]
  - Application site dryness [Unknown]
  - Application site pruritus [Recovering/Resolving]
  - Application site irritation [Unknown]

NARRATIVE: CASE EVENT DATE: 20151208
